FAERS Safety Report 6411057-0 (Version None)
Quarter: 2009Q4

REPORT INFORMATION
  Report Type: 
  Country: None (occurrence: None)
  Receive Date: 20091021
  Receipt Date: 20091021
  Transmission Date: 20100525
  Serious: Yes (Hospitalization)
  Sender: FDA-Public Use
  Company Number: None

PATIENT
  Sex: Female
  Weight: 56.6996 kg

DRUGS (1)
  1. RECLAST [Suspect]
     Indication: OSTEOPOROSIS
     Dosage: ONE DOSE AS RECOMMENDED ANNUAL IV DRIP 15 MINUTE INTRAVENOUS DRI
     Route: 041
     Dates: start: 20090918, end: 20090918

REACTIONS (10)
  - ACTIVITIES OF DAILY LIVING IMPAIRED [None]
  - ARTHRALGIA [None]
  - BLOOD CALCIUM DECREASED [None]
  - DYSSTASIA [None]
  - GAIT DISTURBANCE [None]
  - HYPERTENSION [None]
  - MYALGIA [None]
  - QUALITY OF LIFE DECREASED [None]
  - RHEUMATOID ARTHRITIS [None]
  - THERMAL BURN [None]
